FAERS Safety Report 20331636 (Version 2)
Quarter: 2022Q1

REPORT INFORMATION
  Report Type: Spontaneous
  Country: DE (occurrence: DE)
  Receive Date: 20220113
  Receipt Date: 20220204
  Transmission Date: 20220423
  Serious: Yes (Other)
  Sender: FDA-Public Use
  Company Number: DE-EMA-DD-20211227-bhushan_a-185849

PATIENT
  Age: 53 Year
  Sex: Female

DRUGS (13)
  1. IBANDRONIC ACID [Suspect]
     Active Substance: IBANDRONIC ACID
     Indication: Osteoporosis
     Route: 042
     Dates: start: 2016
  2. TRUVADA [Suspect]
     Active Substance: EMTRICITABINE\TENOFOVIR DISOPROXIL FUMARATE
     Indication: HIV infection
     Route: 065
     Dates: start: 201501
  3. PIBRENTASVIR [Suspect]
     Active Substance: PIBRENTASVIR
     Indication: Hepatitis C
     Route: 065
     Dates: start: 201702
  4. DOLUTEGRAVIR SODIUM\LAMIVUDINE [Suspect]
     Active Substance: DOLUTEGRAVIR SODIUM\LAMIVUDINE
     Indication: HIV infection
     Route: 065
  5. OMBITASVIR [Suspect]
     Active Substance: OMBITASVIR
     Indication: Hepatitis C
     Route: 065
  6. DOLUTEGRAVIR [Suspect]
     Active Substance: DOLUTEGRAVIR
     Indication: HIV infection
     Route: 065
     Dates: start: 201501
  7. DESCOVY [Suspect]
     Active Substance: EMTRICITABINE\TENOFOVIR ALAFENAMIDE FUMARATE
     Indication: HIV infection
     Dosage: UNK
     Route: 065
     Dates: start: 201605
  8. DACLATASVIR [Suspect]
     Active Substance: DACLATASVIR
     Indication: Hepatitis C
     Route: 065
  9. HARVONI [Suspect]
     Active Substance: LEDIPASVIR\SOFOSBUVIR
     Indication: Hepatitis C
     Route: 065
  10. LEDIPASVIR [Suspect]
     Active Substance: LEDIPASVIR
     Indication: Hepatitis C
     Route: 065
  11. SIMEPREVIR [Suspect]
     Active Substance: SIMEPREVIR
     Indication: Hepatitis C
     Route: 065
  12. ELBASVIR\GRAZOPREVIR [Suspect]
     Active Substance: ELBASVIR\GRAZOPREVIR
     Indication: Hepatitis C
     Route: 065
     Dates: start: 201702
  13. SOFOSBUVIR [Suspect]
     Active Substance: SOFOSBUVIR
     Indication: Hepatitis C
     Route: 065
     Dates: start: 201702

REACTIONS (5)
  - Osteoporosis [Unknown]
  - Hepatitis C [Recovered/Resolved]
  - Drug resistance [Unknown]
  - Fibrosis [Unknown]
  - Foot fracture [Unknown]

NARRATIVE: CASE EVENT DATE: 20190801
